FAERS Safety Report 24402845 (Version 3)
Quarter: 2025Q3

REPORT INFORMATION
  Report Type: Spontaneous
  Country: EU (occurrence: EU)
  Receive Date: 20241007
  Receipt Date: 20250803
  Transmission Date: 20251020
  Serious: Yes (Hospitalization)
  Sender: ALEXION PHARMACEUTICALS
  Company Number: EU-ASTRAZENECA-202409GLO001723FR

PATIENT
  Age: 72 Year
  Sex: Male
  Weight: 50 kg

DRUGS (20)
  1. QUETIAPINE FUMARATE [Suspect]
     Active Substance: QUETIAPINE FUMARATE
     Dosage: 1 DOSAGE FORM, QD
     Dates: start: 20240716, end: 20240716
  2. TRAMADOL HYDROCHLORIDE [Suspect]
     Active Substance: TRAMADOL HYDROCHLORIDE
     Dosage: 1 DOSAGE FORM, QD
     Dates: start: 20240716, end: 20240716
  3. DAFALGAN [Suspect]
     Active Substance: ACETAMINOPHEN
     Dosage: 15 MILLIGRAM, QD
     Dates: start: 20240716, end: 20240716
  4. Lamaline [Concomitant]
     Dosage: 1 DOSAGE FORM, Q8H
  5. TAMSULOSIN [Concomitant]
     Active Substance: TAMSULOSIN
     Dosage: 1 DOSAGE FORM, QD
     Route: 065
  6. HYALURONATE SODIUM\TREHALOSE [Concomitant]
     Active Substance: HYALURONATE SODIUM\TREHALOSE
     Dosage: 1 DOSAGE FORM, Q12H
     Route: 065
  7. VENTOLIN [Concomitant]
     Active Substance: ALBUTEROL SULFATE
     Route: 065
  8. Spasfon [Concomitant]
     Dosage: 1 DOSAGE FORM, Q8H
     Route: 065
  9. CHOLECALCIFEROL [Concomitant]
     Active Substance: CHOLECALCIFEROL
  10. FORMOTEROL [Concomitant]
     Active Substance: FORMOTEROL
     Dosage: 1 DOSAGE FORM, Q12H
     Route: 065
  11. GABAPENTIN [Concomitant]
     Active Substance: GABAPENTIN
     Dosage: 1 DOSAGE FORM, Q8H
     Route: 065
  12. KETOTIFEN FUMARATE [Concomitant]
     Active Substance: KETOTIFEN FUMARATE
     Dosage: 1 DOSAGE FORM, BID
     Route: 065
  13. PANTOPRAZOLE [Concomitant]
     Active Substance: PANTOPRAZOLE
     Dosage: 1 DOSAGE FORM, QD
  14. ACETAMINOPHEN [Concomitant]
     Active Substance: ACETAMINOPHEN
  15. DUPHALAC [Concomitant]
     Active Substance: LACTULOSE
  16. KETOCONAZOLE [Concomitant]
     Active Substance: KETOCONAZOLE
  17. CLOPIDOGREL [Concomitant]
     Active Substance: CLOPIDOGREL BISULFATE
     Dosage: 1 DOSAGE FORM, QD
  18. OXAZEPAM [Concomitant]
     Active Substance: OXAZEPAM
     Dosage: 10 MILLIGRAM, Q12H
     Dates: start: 20240705
  19. BACLOFEN [Concomitant]
     Active Substance: BACLOFEN
     Indication: Muscle spasticity
     Dosage: 10 MILLIGRAM, EVERY 8 HRS
     Dates: start: 20240705
  20. MIRTAZAPINE [Suspect]
     Active Substance: MIRTAZAPINE
     Dosage: 15 MILLIGRAM, QD
     Dates: start: 20240716, end: 20240716

REACTIONS (3)
  - Somnolence [Unknown]
  - Sinus bradycardia [Unknown]
  - Wrong patient received product [Recovered/Resolved]

NARRATIVE: CASE EVENT DATE: 20240716
